FAERS Safety Report 16798980 (Version 2)
Quarter: 2019Q3

REPORT INFORMATION
  Report Type: Spontaneous
  Country: US (occurrence: US)
  Receive Date: 20190912
  Receipt Date: 20190924
  Transmission Date: 20191005
  Serious: Yes (Other)
  Sender: FDA-Public Use
  Company Number: US-PFIZER INC-2019391704

PATIENT
  Age: 48 Year
  Sex: Female
  Weight: 65.31 kg

DRUGS (2)
  1. LYRICA [Suspect]
     Active Substance: PREGABALIN
     Dosage: UNK (150 WHITE ONE)
  2. LYRICA [Suspect]
     Active Substance: PREGABALIN
     Dosage: UNK, 3X/DAY (RED 100 3 TIMES A DAY )

REACTIONS (2)
  - Drug ineffective [Unknown]
  - Blindness [Unknown]
